FAERS Safety Report 7659186-8 (Version None)
Quarter: 2011Q3

REPORT INFORMATION
  Report Type: 
  Country: None (occurrence: None)
  Receive Date: 20110805
  Receipt Date: 20110727
  Transmission Date: 20111222
  Serious: Yes (Other)
  Sender: FDA-Public Use
  Company Number: ZA-VIIV HEALTHCARE LIMITED-B0737469A

PATIENT
  Age: 7 Year
  Sex: Female

DRUGS (7)
  1. EFAVIRENZ [Suspect]
     Indication: HIV INFECTION
     Route: 065
  2. PYRAZINAMIDE [Concomitant]
  3. COTRIM [Concomitant]
  4. FLUCONAZOLE [Concomitant]
  5. STAVUDINE [Suspect]
     Indication: HIV INFECTION
     Route: 065
  6. ENALAPRIL MALEATE [Concomitant]
  7. LAMIVUDINE [Suspect]
     Indication: HIV INFECTION
     Route: 065

REACTIONS (2)
  - CRYPTOCOCCOSIS [None]
  - GLOMERULOSCLEROSIS [None]
